FAERS Safety Report 12840029 (Version 1)
Quarter: 2016Q4

REPORT INFORMATION
  Report Type: Spontaneous
  Country: US (occurrence: US)
  Receive Date: 20161012
  Receipt Date: 20161012
  Transmission Date: 20170207
  Serious: Yes (Other)
  Sender: FDA-Public Use
  Company Number: US-ACTELION-A-US2016-143473

PATIENT
  Age: 39 Year
  Sex: Female

DRUGS (7)
  1. LEUCOVORIN. [Concomitant]
     Active Substance: LEUCOVORIN
     Dosage: 5 MG, QD
     Route: 048
     Dates: start: 20160204
  2. VITAMIN D [Concomitant]
     Active Substance: CHOLECALCIFEROL
     Dosage: 500 U, QD
     Route: 048
     Dates: start: 20160204
  3. MULTIVITAMIN [Concomitant]
     Active Substance: VITAMINS
     Dosage: UNK, 1 TABLET QD
     Route: 048
     Dates: start: 20160204
  4. VITAMIN B COMPLEX [Concomitant]
     Active Substance: CYANOCOBALAMIN\DEXPANTHENOL\NIACINAMIDE\PYRIDOXINE HYDROCHLORIDE\RIBOFLAVIN 5^-PHOSPHATE SODIUM\THIAMINE HYDROCHLORIDE\VITAMIN B COMPLEX
     Dosage: UNK, 1 CAPSULE QD
     Route: 048
     Dates: start: 20160204
  5. DARAPRIM [Concomitant]
     Active Substance: PYRIMETHAMINE
     Dosage: 25 MG, QD
     Route: 048
     Dates: start: 20160204
  6. ZAVESCA [Suspect]
     Active Substance: MIGLUSTAT
     Indication: TAY-SACHS DISEASE
     Dosage: 100 MG, TID
     Route: 048
     Dates: start: 20160204
  7. ESTRADIOL. [Concomitant]
     Active Substance: ESTRADIOL
     Dosage: UNK, 1 PATCH TWICE WEEKLY
     Route: 061
     Dates: start: 20160204

REACTIONS (1)
  - Lumbar puncture [Unknown]

NARRATIVE: CASE EVENT DATE: 201608
